FAERS Safety Report 5904834-3 (Version None)
Quarter: 2008Q4

REPORT INFORMATION
  Report Type: 
  Country: None (occurrence: None)
  Receive Date: 20081001
  Receipt Date: 20080926
  Transmission Date: 20090506
  Serious: Yes (Life-Threatening, Hospitalization, Disabling, Other)
  Sender: FDA-Public Use
  Company Number: US-MERCK-0805USA02032

PATIENT
  Age: 51 Year
  Sex: Female
  Weight: 90 kg

DRUGS (6)
  1. VYTORIN [Suspect]
     Indication: HYPERLIPIDAEMIA
     Route: 048
     Dates: end: 20080318
  2. COUMADIN [Suspect]
     Indication: DEEP VEIN THROMBOSIS
     Route: 048
     Dates: end: 20080301
  3. COUMADIN [Suspect]
     Route: 048
     Dates: start: 20080318
  4. METFORMIN [Concomitant]
     Route: 048
  5. GLIPIZIDE [Concomitant]
     Route: 048
  6. ACTOS [Concomitant]
     Route: 048

REACTIONS (7)
  - COAGULOPATHY [None]
  - DEEP VEIN THROMBOSIS [None]
  - DRUG INTERACTION [None]
  - DYSURIA [None]
  - HYPOCOAGULABLE STATE [None]
  - MUSCULOSKELETAL PAIN [None]
  - PYREXIA [None]
